FAERS Safety Report 16886268 (Version 1)
Quarter: 2019Q4

REPORT INFORMATION
  Report Type: Spontaneous
  Country: US (occurrence: US)
  Receive Date: 20191004
  Receipt Date: 20191004
  Transmission Date: 20200122
  Serious: Yes (Hospitalization)
  Sender: FDA-Public Use
  Company Number: None

PATIENT
  Age: 47 Year
  Sex: Female
  Weight: 81 kg

DRUGS (5)
  1. ZANTAC [Concomitant]
     Active Substance: RANITIDINE HYDROCHLORIDE
  2. PAXIL [Concomitant]
     Active Substance: PAROXETINE HYDROCHLORIDE
  3. COLD-EEZE , ZINC GLUCONATE GLYCINE [Suspect]
     Active Substance: ZINC GLUCONATE
     Indication: PROPHYLAXIS
     Dosage: ?          OTHER STRENGTH:CHERRY HOMEOPATHIC;QUANTITY:18 LOZENGES;OTHER FREQUENCY:AS NEEDED;?
     Route: 048
     Dates: start: 20191004, end: 20191004
  4. ONE A DAY WOMENS GUMMIES [Concomitant]
  5. ZYRTEC [Concomitant]
     Active Substance: CETIRIZINE HYDROCHLORIDE

REACTIONS (1)
  - Hypersensitivity [None]

NARRATIVE: CASE EVENT DATE: 20191004
